FAERS Safety Report 22214415 (Version 1)
Quarter: 2023Q2

REPORT INFORMATION
  Report Type: Spontaneous
  Country: GB (occurrence: GB)
  Receive Date: 20230414
  Receipt Date: 20230414
  Transmission Date: 20230721
  Serious: Yes (Death, Hospitalization, Other)
  Sender: FDA-Public Use
  Company Number: GB-009507513-2012GBR002091

PATIENT
  Age: 53 Year
  Sex: Male
  Weight: 125 kg

DRUGS (27)
  1. OXYCONTIN [Suspect]
     Active Substance: OXYCODONE HYDROCHLORIDE
     Indication: Pain
     Dosage: 30 MILLIGRAM, ONCE
     Route: 048
     Dates: start: 20201105
  2. OXYCONTIN [Suspect]
     Active Substance: OXYCODONE HYDROCHLORIDE
     Dosage: 40 MILLIGRAM (THERAPY START DATE : 24 FEB 202140 MILLIGRAM, ONCE)
     Route: 065
     Dates: start: 20210224
  3. OXYCODONE HYDROCHLORIDE [Suspect]
     Active Substance: OXYCODONE HYDROCHLORIDE
     Indication: Pelvic pain
     Dosage: 5 MILLIGRAM, DAILY (START DATE: 05-NOV-2020)
     Route: 048
     Dates: start: 20201105
  4. OXYCODONE HYDROCHLORIDE [Suspect]
     Active Substance: OXYCODONE HYDROCHLORIDE
     Indication: Product used for unknown indication
     Dosage: 400 MILLIGRAM, DAILY
     Route: 048
  5. BISOPROLOL [Suspect]
     Active Substance: BISOPROLOL
     Indication: Coronary artery disease
     Dosage: 7.5 MILLIGRAM, DAILY
     Route: 048
     Dates: start: 2017
  6. FUROSEMIDE [Suspect]
     Active Substance: FUROSEMIDE
     Indication: Coronary artery disease
     Dosage: 20 MILLIGRAM, DAILY
     Route: 048
     Dates: start: 20201125
  7. GEMCITABINE [Suspect]
     Active Substance: GEMCITABINE
     Indication: Undifferentiated sarcoma
     Dosage: THERAPY START DATE 04 MAR 20211710 MILLIGRAM, FREQUENCY: D1 AND D8
     Route: 042
     Dates: start: 20210304, end: 20210304
  8. GEMCITABINE [Suspect]
     Active Substance: GEMCITABINE
     Indication: Leiomyosarcoma
     Dosage: DOSE: 2128 MG, FREQUENCY: D1 AND D8
     Route: 042
     Dates: start: 20201117, end: 20201210
  9. GEMCITABINE [Suspect]
     Active Substance: GEMCITABINE
     Dosage: 2660 MILLIGRAM, FREQUENCY: D1 AND D8
     Route: 042
     Dates: start: 20201117, end: 20201124
  10. LOSARTAN POTASSIUM [Suspect]
     Active Substance: LOSARTAN POTASSIUM
     Indication: Hypertension
     Dosage: 50 MILLIGRAM, DAILY (THERAPY START DATE : 06 DEC 202050 MILLIGRAM, QD)
     Route: 048
     Dates: start: 20201206, end: 20210308
  11. METOCLOPRAMIDE [Suspect]
     Active Substance: METOCLOPRAMIDE
     Indication: Nausea
     Dosage: 10 MILLIGRAM, DAILY (THERAPY START DATE : 06-DEC-2020)
     Route: 048
     Dates: start: 20201206
  12. PEMBROLIZUMAB [Suspect]
     Active Substance: PEMBROLIZUMAB
     Indication: Undifferentiated sarcoma
     Dosage: 200 MILLIGRAM,IN 3 WEEKS
     Route: 042
     Dates: start: 20201117, end: 20210304
  13. PEMBROLIZUMAB [Suspect]
     Active Substance: PEMBROLIZUMAB
     Indication: Leiomyosarcoma
     Dosage: 200 MILLIGRAM (START DATE: 08-JUL-2021)
     Route: 042
     Dates: start: 20210708, end: 20210708
  14. ACETAMINOPHEN [Concomitant]
     Active Substance: ACETAMINOPHEN
     Indication: Pelvic pain
     Dosage: 1 GRAM, QD/PRN THERAPY END DATE -28 JUL 2021
     Route: 048
     Dates: start: 2008, end: 20210728
  15. ASPIRIN [Concomitant]
     Active Substance: ASPIRIN
     Indication: Prophylaxis
     Dosage: 75 MILLIGRAM, DAILY (75 MILLIGRAM, QD)
     Route: 048
     Dates: start: 2017
  16. ATORVASTATIN [Concomitant]
     Active Substance: ATORVASTATIN
     Indication: Coronary artery disease
     Dosage: 80 MILLIGRAM, DAILY
     Route: 048
     Dates: start: 2017
  17. CLOTRIMAZOLE [Concomitant]
     Active Substance: CLOTRIMAZOLE
     Indication: Intertrigo
     Dosage: DOSE: T, BID
     Route: 061
     Dates: start: 20201123, end: 20201127
  18. DOCUSATE SODIUM [Concomitant]
     Active Substance: DOCUSATE SODIUM
     Indication: Constipation
     Dosage: 200 MILLIGRAM (200 MILLIGRAM, BID)
     Route: 048
     Dates: start: 2008
  19. LANOLIN\LIGHT MINERAL OIL\PARAFFIN [Concomitant]
     Active Substance: LANOLIN\LIGHT MINERAL OIL\PARAFFIN
     Indication: Rash
     Dosage: DOSE: T TOPICAL, TID
     Route: 061
     Dates: start: 20201123, end: 2021
  20. GABAPENTIN [Concomitant]
     Active Substance: GABAPENTIN
     Indication: Neuralgia
     Dosage: 300 MG MANE, 600 MG NOCTE
     Route: 048
     Dates: start: 20201125, end: 20201127
  21. LANOLIN [Concomitant]
     Active Substance: LANOLIN
     Indication: Rash
     Dosage: UNK, TID
     Route: 061
     Dates: start: 20201123, end: 2021
  22. LANSOPRAZOLE [Concomitant]
     Active Substance: LANSOPRAZOLE
     Indication: Gastrooesophageal reflux disease
     Dosage: 30 MILLIGRAM, DAILY (30 MILLIGRAM, QD)
     Route: 048
     Dates: start: 2017
  23. POLYETHYLENE GLYCOL 3350\POTASSIUM CHLORIDE\SODIUM BICARBONATE\SODIUM [Concomitant]
     Active Substance: POLYETHYLENE GLYCOL 3350\POTASSIUM CHLORIDE\SODIUM BICARBONATE\SODIUM CHLORIDE
     Indication: Constipation
     Dosage: 1 DOSAGE FORM, DAILY (DOSE: 1 SACHET, BID/PRN, THERAPY END DATE- 28 JUL 2021)
     Route: 048
     Dates: start: 2008, end: 20210728
  24. LIDOCAINE [Concomitant]
     Active Substance: LIDOCAINE
     Indication: Pain
     Dosage: DOSE: T TOPICAL, TID
     Route: 061
     Dates: start: 20201109
  25. MINERAL OIL [Concomitant]
     Active Substance: MINERAL OIL
     Indication: Rash
     Dosage: UNK, TID
     Route: 061
     Dates: start: 20201123, end: 2021
  26. PETROLATUM [Concomitant]
     Active Substance: PETROLATUM
     Indication: Rash
     Dosage: UNK, TID
     Route: 061
     Dates: start: 20201123, end: 2021
  27. SENOKOT [Concomitant]
     Active Substance: SENNOSIDES
     Indication: Constipation
     Dosage: 7.5 MILLIGRAM, DAILY (7.5 MILLIGRAM (ALSO REPORTED AS 2 TABLETS), QD)
     Route: 048
     Dates: start: 20200223, end: 20210308

REACTIONS (13)
  - Death [Fatal]
  - Pneumonia [Fatal]
  - Skin infection [Fatal]
  - Accident [Fatal]
  - Cardiac failure [Fatal]
  - Dyspnoea [Fatal]
  - Cellulitis [Fatal]
  - Fall [Fatal]
  - Urinary retention [Fatal]
  - Blood bilirubin increased [Fatal]
  - Dizziness [Fatal]
  - Urinary tract infection [Fatal]
  - Constipation [Fatal]

NARRATIVE: CASE EVENT DATE: 20201128
